FAERS Safety Report 14759138 (Version 2)
Quarter: 2018Q3

REPORT INFORMATION
  Report Type: Spontaneous
  Country: US (occurrence: US)
  Receive Date: 20180413
  Receipt Date: 20180831
  Transmission Date: 20181010
  Serious: Yes (Other)
  Sender: FDA-Public Use
  Company Number: US-AMGEN-USASP2018047996

PATIENT
  Age: 82 Year
  Sex: Female
  Weight: 73.48 kg

DRUGS (4)
  1. HUMIRA [Suspect]
     Active Substance: ADALIMUMAB
     Indication: RHEUMATOID ARTHRITIS
     Dosage: UNK
     Route: 065
  2. ENBREL [Suspect]
     Active Substance: ETANERCEPT
     Indication: RHEUMATOID ARTHRITIS
     Dosage: UNK
     Route: 065
  3. SULFADIN [Concomitant]
     Dosage: UNK
  4. XELJANZ XR [Concomitant]
     Active Substance: TOFACITINIB CITRATE
     Indication: RHEUMATOID ARTHRITIS
     Dosage: 11 MG, QD
     Route: 065
     Dates: start: 201803

REACTIONS (9)
  - Mobility decreased [Recovering/Resolving]
  - Sciatica [Recovering/Resolving]
  - Somnolence [Recovered/Resolved]
  - Uterine cancer [Not Recovered/Not Resolved]
  - Neck pain [Recovering/Resolving]
  - Joint stiffness [Recovering/Resolving]
  - Drug hypersensitivity [Unknown]
  - Neuralgia [Recovering/Resolving]
  - Balance disorder [Recovered/Resolved]

NARRATIVE: CASE EVENT DATE: 2013
